FAERS Safety Report 22247015 (Version 3)
Quarter: 2023Q4

REPORT INFORMATION
  Report Type: Spontaneous
  Country: US (occurrence: US)
  Receive Date: 20230424
  Receipt Date: 20231025
  Transmission Date: 20240110
  Serious: Yes (Disabling, Other)
  Sender: FDA-Public Use
  Company Number: US-TEVA-2023-US-2879577

PATIENT
  Age: 63 Year
  Sex: Female

DRUGS (4)
  1. CARBOPLATIN [Suspect]
     Active Substance: CARBOPLATIN
     Indication: Product used for unknown indication
     Route: 065
  2. HERCEPTIN [Suspect]
     Active Substance: TRASTUZUMAB
     Indication: Product used for unknown indication
     Route: 065
  3. DOCETAXEL [Suspect]
     Active Substance: DOCETAXEL
     Indication: Breast cancer
     Dosage: NUMBER OF CYCLE - 06, PACKAGE: 8 ML VIAL
     Route: 065
     Dates: start: 20140505, end: 20140919
  4. ELIQUIS [Concomitant]
     Active Substance: APIXABAN
     Indication: Product used for unknown indication
     Route: 065
     Dates: start: 2013

REACTIONS (7)
  - Lacrimation increased [Not Recovered/Not Resolved]
  - Lacrimal structure injury [Unknown]
  - Vision blurred [Unknown]
  - Visual impairment [Unknown]
  - Eye irritation [Unknown]
  - Foreign body sensation in eyes [Unknown]
  - Eye pruritus [Unknown]

NARRATIVE: CASE EVENT DATE: 20140101
